FAERS Safety Report 8871550 (Version 6)
Quarter: 2019Q1

REPORT INFORMATION
  Report Type: Report from Study
  Country: CA (occurrence: CA)
  Receive Date: 20121029
  Receipt Date: 20190227
  Transmission Date: 20190418
  Serious: Yes (Hospitalization, Other)
  Sender: FDA-Public Use
  Company Number: CA-ROCHE-1125345

PATIENT
  Age: 55 Year
  Sex: Female
  Weight: 79.37 kg

DRUGS (18)
  1. BENADRYL [Concomitant]
     Active Substance: DIPHENHYDRAMINE HYDROCHLORIDE
     Dosage: ONGOING:YES
     Route: 048
     Dates: start: 20150817
  2. ACTEMRA [Suspect]
     Active Substance: TOCILIZUMAB
     Indication: RHEUMATOID ARTHRITIS
     Route: 042
     Dates: start: 20120130, end: 20130415
  3. RALIVIA [Concomitant]
     Active Substance: TRAMADOL HYDROCHLORIDE
  4. NAPROXEN. [Concomitant]
     Active Substance: NAPROXEN
  5. XELJANZ [Concomitant]
     Active Substance: TOFACITINIB CITRATE
  6. METHOTREXATE. [Concomitant]
     Active Substance: METHOTREXATE
  7. TYLENOL [Concomitant]
     Active Substance: ACETAMINOPHEN
     Dosage: ONGOING:YES
     Route: 048
     Dates: start: 20150807
  8. RITUXAN [Suspect]
     Active Substance: RITUXIMAB
     Indication: RHEUMATOID ARTHRITIS
     Dosage: ONGOING
     Route: 042
     Dates: start: 20150817
  9. LYRICA [Concomitant]
     Active Substance: PREGABALIN
  10. HYDROMORPH CONTIN [Concomitant]
     Active Substance: HYDROMORPHONE
     Route: 065
  11. FORTEO [Concomitant]
     Active Substance: TERIPARATIDE
     Route: 042
  12. SOLU-MEDROL [Concomitant]
     Active Substance: METHYLPREDNISOLONE SODIUM SUCCINATE
     Dosage: ONGOING:YES
     Route: 042
     Dates: start: 20150817
  13. FOSAMAX [Concomitant]
     Active Substance: ALENDRONATE SODIUM
  14. HYDROMORPHONE [Concomitant]
     Active Substance: HYDROMORPHONE
  15. FOLIC ACID. [Concomitant]
     Active Substance: FOLIC ACID
  16. ULTRADOL [Concomitant]
  17. FLUOXETINE [Concomitant]
     Active Substance: FLUOXETINE HYDROCHLORIDE
  18. LOSEC [Concomitant]
     Active Substance: OMEPRAZOLE
     Dosage: STOMACH
     Route: 065

REACTIONS (6)
  - Bronchitis [Unknown]
  - Fall [Unknown]
  - Clostridium difficile infection [Not Recovered/Not Resolved]
  - Ingrowing nail [Not Recovered/Not Resolved]
  - Femur fracture [Not Recovered/Not Resolved]
  - Localised infection [Unknown]

NARRATIVE: CASE EVENT DATE: 201207
